FAERS Safety Report 4972245-3 (Version None)
Quarter: 2006Q2

REPORT INFORMATION
  Report Type: 
  Country: None (occurrence: None)
  Receive Date: 20060413
  Receipt Date: 20060202
  Transmission Date: 20061013
  Serious: Yes (Other)
  Sender: FDA-Public Use
  Company Number: PHFR2006GB00741

PATIENT

DRUGS (2)
  1. EXELON [Suspect]
     Indication: DEMENTIA
     Dosage: 4.5MG DAILY
     Route: 065
  2. MIRTAZAPINE [Concomitant]
     Route: 065

REACTIONS (1)
  - EXTRAPYRAMIDAL DISORDER [None]
